FAERS Safety Report 6172973-0 (Version None)
Quarter: 2009Q2

REPORT INFORMATION
  Report Type: 
  Country: None (occurrence: None)
  Receive Date: 20090430
  Receipt Date: 20090415
  Transmission Date: 20091009
  Serious: Yes (Hospitalization, Other)
  Sender: FDA-Public Use
  Company Number: ZA-BAYER-200918791GPV

PATIENT
  Sex: Female

DRUGS (1)
  1. MIRENA [Suspect]
     Indication: CONTRACEPTION
     Dosage: UNIT DOSE: 52 MG
     Route: 015

REACTIONS (2)
  - GESTATIONAL TROPHOBLASTIC TUMOUR [None]
  - PREGNANCY [None]
